FAERS Safety Report 6831317-9 (Version None)
Quarter: 2010Q3

REPORT INFORMATION
  Report Type: 
  Country: None (occurrence: None)
  Receive Date: 20100712
  Receipt Date: 20100630
  Transmission Date: 20110219
  Serious: Yes (Other)
  Sender: FDA-Public Use
  Company Number: US-PFIZER INC-2010082645

PATIENT
  Sex: Female

DRUGS (1)
  1. GEODON [Suspect]
     Dosage: UNK

REACTIONS (4)
  - CONCUSSION [None]
  - DRUG INEFFECTIVE [None]
  - NERVOUS SYSTEM DISORDER [None]
  - ROAD TRAFFIC ACCIDENT [None]
